FAERS Safety Report 4615146-2 (Version None)
Quarter: 2005Q1

REPORT INFORMATION
  Report Type: 
  Country: None (occurrence: None)
  Receive Date: 20050315
  Receipt Date: 20050301
  Transmission Date: 20050727
  Serious: Yes (Life-Threatening, Hospitalization)
  Sender: FDA-Public Use
  Company Number: F01200500350

PATIENT
  Age: 60 Year
  Sex: Male

DRUGS (4)
  1. OXALIPLATIN - SOLUTION - 85 MG/M2 [Suspect]
     Indication: COLORECTAL CANCER
     Dosage: 85 MG/M2 Q2W - INTRAVENOUS NOS
     Route: 042
     Dates: start: 20020826, end: 20020826
  2. FLUOROURACIL [Suspect]
     Dosage: (400 MG/M2 AS BOLUS FOLLOWED BY 600 MG/M2 IV OVER 22 HOURS, ON D1-D2 Q2W) - INTRAVENOUS NOS
     Route: 042
     Dates: start: 20020826, end: 20020827
  3. LEUCOVORIN CALCIUM [Suspect]
     Dosage: (200 MG/M2 IV OVER 2 HOURS ON D1-D2, Q2W), INTRAVENOUS NOS
     Route: 042
     Dates: start: 20020826, end: 20020827
  4. BEVACIZUMAB - SOLUTION - 10 MG/KG [Suspect]
     Dosage: 10 MG/KG - INTRAVENOUS NOS
     Route: 042
     Dates: start: 20020826, end: 20020826

REACTIONS (11)
  - ARTHRALGIA [None]
  - ASTHENIA [None]
  - COLORECTAL CANCER [None]
  - DIFFICULTY IN WALKING [None]
  - MALIGNANT NEOPLASM PROGRESSION [None]
  - NEOPLASM RECURRENCE [None]
  - NEUTROPENIA [None]
  - PERIRECTAL ABSCESS [None]
  - RECTAL PERFORATION [None]
  - SCIATICA [None]
  - TUMOUR NECROSIS [None]
